FAERS Safety Report 5581339-3 (Version None)
Quarter: 2008Q1

REPORT INFORMATION
  Report Type: 
  Country: None (occurrence: None)
  Receive Date: 20080104
  Receipt Date: 20071226
  Transmission Date: 20080703
  Serious: Yes (Other)
  Sender: FDA-Public Use
  Company Number: PHBS2007BR21390

PATIENT
  Age: 5 Year
  Sex: Male
  Weight: 20 kg

DRUGS (3)
  1. RITALIN [Suspect]
     Indication: PSYCHOMOTOR HYPERACTIVITY
     Dosage: 10 MG, UNK
     Route: 048
     Dates: start: 20071206
  2. DESELEX [Concomitant]
     Indication: NASAL CONGESTION
     Dosage: 5 ML, QD
     Dates: start: 20071221
  3. PROFENID [Concomitant]
     Indication: PAIN IN EXTREMITY
     Dosage: UNK, QD
     Route: 048
     Dates: start: 20071026

REACTIONS (3)
  - ABASIA [None]
  - PAIN IN EXTREMITY [None]
  - VIRAL INFECTION [None]
